FAERS Safety Report 12741689 (Version 2)
Quarter: 2016Q4

REPORT INFORMATION
  Report Type: Spontaneous
  Country: US (occurrence: US)
  Receive Date: 20160914
  Receipt Date: 20161018
  Transmission Date: 20170207
  Serious: No
  Sender: FDA-Public Use
  Company Number: US-GLAXOSMITHKLINE-US2016133210

PATIENT
  Age: 33 Year
  Sex: Male

DRUGS (1)
  1. FLONASE [Suspect]
     Active Substance: FLUTICASONE PROPIONATE
     Indication: HYPERSENSITIVITY
     Dosage: UNK

REACTIONS (11)
  - Vertigo [Unknown]
  - Panic attack [Unknown]
  - Depression [Unknown]
  - Urticaria [Unknown]
  - Ill-defined disorder [Unknown]
  - Insomnia [Unknown]
  - Oral candidiasis [Unknown]
  - Anxiety [Unknown]
  - Documented hypersensitivity to administered product [Unknown]
  - Flushing [Unknown]
  - Rash [Unknown]

NARRATIVE: CASE EVENT DATE: 20160905
